FAERS Safety Report 20482555 (Version 15)
Quarter: 2023Q4

REPORT INFORMATION
  Report Type: Spontaneous
  Country: PT (occurrence: PT)
  Receive Date: 20220217
  Receipt Date: 20231221
  Transmission Date: 20240110
  Serious: Yes (Death, Other)
  Sender: FDA-Public Use
  Company Number: PT-UCBSA-2022001523

PATIENT

DRUGS (113)
  1. ADALIMUMAB [Suspect]
     Active Substance: ADALIMUMAB\ISOPROPYL ALCOHOL
     Indication: Product used for unknown indication
     Dosage: 35 GRAM
     Route: 065
  2. ETANERCEPT [Suspect]
     Active Substance: ETANERCEPT
     Indication: Product used for unknown indication
     Dosage: UNK
     Route: 065
  3. IBANDRONIC ACID [Suspect]
     Active Substance: IBANDRONIC ACID
     Indication: Product used for unknown indication
     Dosage: UNK
     Route: 065
  4. LETROZOLE [Suspect]
     Active Substance: LETROZOLE
     Indication: Product used for unknown indication
     Dosage: UNK
     Route: 065
  5. ATORVASTATIN CALCIUM [Suspect]
     Active Substance: ATORVASTATIN CALCIUM
     Indication: Product used for unknown indication
     Dosage: UNK
     Route: 065
  6. TELMISARTAN [Suspect]
     Active Substance: TELMISARTAN
     Indication: Product used for unknown indication
     Dosage: UNK
     Route: 065
  7. MYCOPHENOLIC ACID [Suspect]
     Active Substance: MYCOPHENOLIC ACID
     Indication: Product used for unknown indication
     Dosage: UNK
     Route: 065
  8. TAMSULOSIN HYDROCHLORIDE [Suspect]
     Active Substance: TAMSULOSIN HYDROCHLORIDE
     Indication: Product used for unknown indication
     Dosage: UNK
     Route: 065
  9. VENLAFAXINE HCL [Suspect]
     Active Substance: VENLAFAXINE HYDROCHLORIDE
     Indication: Product used for unknown indication
     Dosage: UNK
     Route: 065
  10. ACETAMINOPHEN [Suspect]
     Active Substance: ACETAMINOPHEN
     Indication: Product used for unknown indication
     Dosage: UNK
     Route: 065
  11. NIMESULIDE [Suspect]
     Active Substance: NIMESULIDE
     Indication: Product used for unknown indication
     Dosage: UNK
     Route: 065
  12. CILAZAPRIL ANHYDROUS [Suspect]
     Active Substance: CILAZAPRIL ANHYDROUS
     Indication: Product used for unknown indication
     Dosage: UNK
     Route: 065
  13. FLUVASTATIN [Suspect]
     Active Substance: FLUVASTATIN SODIUM
     Indication: Product used for unknown indication
     Dosage: UNK
     Route: 065
  14. CHOLECALCIFEROL [Suspect]
     Active Substance: CHOLECALCIFEROL
     Indication: Product used for unknown indication
     Dosage: 50 MILLIGRAM
     Route: 065
  15. CHOLECALCIFEROL [Suspect]
     Active Substance: CHOLECALCIFEROL
     Dosage: 22400 INTERNATIONAL UNIT
     Route: 065
  16. RIBAVIRIN [Suspect]
     Active Substance: RIBAVIRIN
     Indication: Product used for unknown indication
     Dosage: 5 MILLIGRAM
     Route: 065
  17. RIBAVIRIN [Suspect]
     Active Substance: RIBAVIRIN
     Dosage: UNK
     Route: 065
  18. NITROGLYCERIN [Suspect]
     Active Substance: NITROGLYCERIN
     Indication: Product used for unknown indication
     Dosage: UNK
     Route: 065
  19. PRAVASTATIN SODIUM [Suspect]
     Active Substance: PRAVASTATIN SODIUM
     Indication: Product used for unknown indication
     Dosage: UNK
     Route: 065
  20. CELEBREX [Suspect]
     Active Substance: CELECOXIB
     Indication: Product used for unknown indication
     Dosage: 100 MG
     Route: 065
  21. PREGABALIN [Suspect]
     Active Substance: PREGABALIN
     Indication: Product used for unknown indication
     Dosage: 50 MILLIGRAM
     Route: 065
  22. PREGABALIN [Suspect]
     Active Substance: PREGABALIN
     Dosage: 120 MILLIGRAM
     Route: 065
  23. ALISKIREN [Suspect]
     Active Substance: ALISKIREN
     Indication: Product used for unknown indication
     Dosage: UNK
     Route: 065
  24. BUPRENORPHINE [Suspect]
     Active Substance: BUPRENORPHINE
     Indication: Product used for unknown indication
     Dosage: 35 G/H TRANSDERMAL SYSTEM
     Route: 062
  25. BUPRENORPHINE [Suspect]
     Active Substance: BUPRENORPHINE
     Dosage: 35 GRAM
     Route: 065
  26. BUPRENORPHINE [Suspect]
     Active Substance: BUPRENORPHINE
     Dosage: 35 GRAM, 1/HR
     Route: 065
  27. PRAVASTATIN [Suspect]
     Active Substance: PRAVASTATIN
     Indication: Product used for unknown indication
     Dosage: UNK
     Route: 065
  28. DONEPEZIL [Suspect]
     Active Substance: DONEPEZIL
     Indication: Product used for unknown indication
     Dosage: 5 MILLIGRAM
     Route: 048
  29. DONEPEZIL [Suspect]
     Active Substance: DONEPEZIL
     Dosage: UNK
     Route: 065
  30. MIRTAZAPINE [Suspect]
     Active Substance: MIRTAZAPINE
     Indication: Product used for unknown indication
     Dosage: UNK
     Route: 048
  31. MIRTAZAPINE [Suspect]
     Active Substance: MIRTAZAPINE
     Dosage: UNK
     Route: 065
  32. FLUOXETINE [Suspect]
     Active Substance: FLUOXETINE HYDROCHLORIDE
     Indication: Product used for unknown indication
     Dosage: UNK
     Route: 065
  33. GINKGO [Suspect]
     Active Substance: GINKGO
     Indication: Product used for unknown indication
     Dosage: UNK
     Route: 065
  34. SIMVASTATIN [Suspect]
     Active Substance: SIMVASTATIN
     Indication: Product used for unknown indication
     Dosage: UNK
     Route: 048
  35. IMATINIB [Suspect]
     Active Substance: IMATINIB
     Indication: Product used for unknown indication
     Dosage: UNK
     Route: 065
  36. FENOFIBRATE [Suspect]
     Active Substance: FENOFIBRATE
     Indication: Product used for unknown indication
     Dosage: 100 MILLIGRAM
     Route: 065
  37. LEVOCETIRIZINE DIHYDROCHLORIDE [Suspect]
     Active Substance: LEVOCETIRIZINE DIHYDROCHLORIDE
     Indication: Product used for unknown indication
     Dosage: 5 MILLIGRAM
     Route: 065
  38. ANASTROZOLE [Suspect]
     Active Substance: ANASTROZOLE
     Indication: Product used for unknown indication
     Dosage: UNK
     Route: 065
  39. ZOMETA [Suspect]
     Active Substance: ZOLEDRONIC ACID
     Indication: Product used for unknown indication
     Dosage: UNK
     Route: 065
  40. DUTASTERIDE [Suspect]
     Active Substance: DUTASTERIDE
     Indication: Product used for unknown indication
     Dosage: 100 MILLIGRAM
     Route: 065
  41. DUTASTERIDE [Suspect]
     Active Substance: DUTASTERIDE
     Dosage: UNK
     Route: 065
  42. SERTRALINE HYDROCHLORIDE [Suspect]
     Active Substance: SERTRALINE HYDROCHLORIDE
     Indication: Product used for unknown indication
     Dosage: UNK
     Route: 065
  43. HYDROMORPHONE [Suspect]
     Active Substance: HYDROMORPHONE
     Indication: Product used for unknown indication
     Dosage: UNK
     Route: 065
  44. NORFLOXACIN [Suspect]
     Active Substance: NORFLOXACIN
     Indication: Product used for unknown indication
     Dosage: UNK
     Route: 065
  45. NILOTINIB [Suspect]
     Active Substance: NILOTINIB
     Indication: Product used for unknown indication
     Dosage: UNK
     Route: 065
  46. ALENDRONIC ACID [Suspect]
     Active Substance: ALENDRONIC ACID
     Indication: Product used for unknown indication
     Dosage: UNK
     Route: 065
  47. PENTOXIFYLLINE [Suspect]
     Active Substance: PENTOXIFYLLINE
     Indication: Product used for unknown indication
     Dosage: UNK
     Route: 065
  48. PENTOXIFYLLINE [Suspect]
     Active Substance: PENTOXIFYLLINE
     Dosage: 400 MILLIGRAM
     Route: 065
  49. DOMPERIDONE [Suspect]
     Active Substance: DOMPERIDONE
     Indication: Product used for unknown indication
     Dosage: UNK
     Route: 065
  50. ACECLOFENAC [Suspect]
     Active Substance: ACECLOFENAC
     Indication: Product used for unknown indication
     Dosage: 100 MILLIGRAM
     Route: 065
  51. VERAPAMIL [Suspect]
     Active Substance: VERAPAMIL HYDROCHLORIDE
     Indication: Product used for unknown indication
     Dosage: 120 MILLIGRAM
     Route: 065
  52. SOFOSBUVIR [Suspect]
     Active Substance: SOFOSBUVIR
     Indication: Product used for unknown indication
     Dosage: UNK
     Route: 065
  53. PROPRANOLOL [Suspect]
     Active Substance: PROPRANOLOL HYDROCHLORIDE
     Indication: Product used for unknown indication
     Dosage: UNK
     Route: 065
  54. GLUCOSAMINE [Suspect]
     Active Substance: GLUCOSAMINE
     Indication: Product used for unknown indication
     Dosage: 1500 MILLIGRAM
     Route: 065
  55. AGOMELATINE [Suspect]
     Active Substance: AGOMELATINE
     Indication: Product used for unknown indication
     Dosage: UNK
     Route: 065
  56. HYDROCHLOROTHIAZIDE [Suspect]
     Active Substance: HYDROCHLOROTHIAZIDE
     Indication: Product used for unknown indication
     Dosage: UNK
     Route: 065
  57. CODEINE [Suspect]
     Active Substance: CODEINE
     Indication: Product used for unknown indication
     Dosage: UNK
     Route: 065
  58. SODIUM PICOSULFATE [Suspect]
     Active Substance: SODIUM PICOSULFATE
     Indication: Product used for unknown indication
     Dosage: 35 GRAM
     Route: 062
  59. LEDIPASVIR [Suspect]
     Active Substance: LEDIPASVIR
     Indication: Product used for unknown indication
     Dosage: UNK
     Route: 065
  60. DOCETAXEL [Suspect]
     Active Substance: DOCETAXEL\DOCETAXEL ANHYDROUS
     Indication: Product used for unknown indication
     Dosage: 100 MILLIGRAM
     Route: 065
  61. DOCETAXEL [Suspect]
     Active Substance: DOCETAXEL\DOCETAXEL ANHYDROUS
     Dosage: 100 MILLIGRAM
     Route: 065
  62. DOCETAXEL [Suspect]
     Active Substance: DOCETAXEL\DOCETAXEL ANHYDROUS
     Dosage: UNK
     Route: 065
  63. ASPIRIN [Suspect]
     Active Substance: ASPIRIN
     Indication: Product used for unknown indication
     Dosage: 100 MILLIGRAM
     Route: 065
  64. TOCILIZUMAB [Suspect]
     Active Substance: TOCILIZUMAB
     Indication: Product used for unknown indication
     Dosage: UNK
     Route: 065
  65. DILTIAZEM [Suspect]
     Active Substance: DILTIAZEM
     Indication: Product used for unknown indication
     Dosage: 120 MILLIGRAM
     Route: 065
  66. VORTIOXETINE [Suspect]
     Active Substance: VORTIOXETINE
     Indication: Product used for unknown indication
     Dosage: UNK
     Route: 065
  67. CELECOXIB [Suspect]
     Active Substance: CELECOXIB
     Indication: Product used for unknown indication
     Dosage: 100 MILLIGRAM
     Route: 065
  68. EXEMESTANE [Suspect]
     Active Substance: EXEMESTANE
     Indication: Product used for unknown indication
     Dosage: 35 GRAM
     Route: 065
  69. BISOPROLOL FUMARATE [Suspect]
     Active Substance: BISOPROLOL FUMARATE
     Indication: Product used for unknown indication
     Dosage: 2.5 MILLIGRAM
     Route: 065
  70. ESCITALOPRAM OXALATE [Suspect]
     Active Substance: ESCITALOPRAM OXALATE
     Indication: Product used for unknown indication
     Dosage: UNK
     Route: 048
  71. ZOLEDRONIC ACID [Suspect]
     Active Substance: ZOLEDRONIC ACID
     Indication: Product used for unknown indication
     Dosage: UNK
     Route: 065
  72. ESCHERICHIA COLI [Suspect]
     Active Substance: ESCHERICHIA COLI
     Indication: Product used for unknown indication
     Dosage: UNK
     Route: 065
  73. EZETIMIBE [Suspect]
     Active Substance: EZETIMIBE
     Indication: Product used for unknown indication
     Dosage: UNK
     Route: 048
  74. ENOXAPARIN SODIUM [Suspect]
     Active Substance: ENOXAPARIN SODIUM
     Indication: Product used for unknown indication
     Dosage: UNK
     Route: 065
  75. INDOMETHACIN SODIUM [Suspect]
     Active Substance: INDOMETHACIN SODIUM
     Indication: Product used for unknown indication
     Dosage: UNK
     Route: 065
  76. POTASSIUM IODIDE [Suspect]
     Active Substance: POTASSIUM IODIDE
     Indication: Product used for unknown indication
     Dosage: UNK
     Route: 065
  77. TAMSULOSIN HYDROCHLORIDE [Suspect]
     Active Substance: TAMSULOSIN HYDROCHLORIDE
     Indication: Product used for unknown indication
     Dosage: UNK
     Route: 065
  78. TRAMADOL HYDROCHLORIDE [Suspect]
     Active Substance: TRAMADOL HYDROCHLORIDE
     Indication: Product used for unknown indication
     Dosage: UNK
     Route: 065
  79. ESCHERICHIA COLI [Suspect]
     Active Substance: ESCHERICHIA COLI
     Indication: Product used for unknown indication
     Dosage: UNK
     Route: 065
  80. BISOPROLOL [Suspect]
     Active Substance: BISOPROLOL\BISOPROLOL FUMARATE
     Indication: Product used for unknown indication
     Dosage: 2.5 MILLIGRAM
     Route: 065
  81. GINKGO [Suspect]
     Active Substance: GINKGO
     Indication: Product used for unknown indication
     Dosage: 120 MILLIGRAM
     Route: 065
  82. GINKGO [Suspect]
     Active Substance: GINKGO
     Dosage: 2.5 MILLIGRAM
     Route: 065
  83. NITROGLYCERIN [Suspect]
     Active Substance: NITROGLYCERIN
     Indication: Product used for unknown indication
     Dosage: UNK
     Route: 065
  84. VERAPAMIL HYDROCHLORIDE [Suspect]
     Active Substance: VERAPAMIL HYDROCHLORIDE
     Indication: Product used for unknown indication
     Dosage: 120 MILLIGRAM
     Route: 065
  85. ESOMEPRAZOLE [Suspect]
     Active Substance: ESOMEPRAZOLE
     Indication: Product used for unknown indication
     Dosage: UNK
     Route: 065
  86. PITAVASTATIN [Suspect]
     Active Substance: PITAVASTATIN
     Indication: Product used for unknown indication
     Route: 065
  87. VENLAFAXINE HYDROCHLORIDE [Suspect]
     Active Substance: VENLAFAXINE HYDROCHLORIDE
     Indication: Product used for unknown indication
     Dosage: UNK
     Route: 065
  88. INDOMETHACIN SODIUM [Suspect]
     Active Substance: INDOMETHACIN SODIUM
     Indication: Product used for unknown indication
     Dosage: UNK
     Route: 065
  89. ASPIRIN\PENTAZOCINE [Suspect]
     Active Substance: ASPIRIN\PENTAZOCINE
     Indication: Product used for unknown indication
     Dosage: UNK
     Route: 065
  90. PENTAZOCINE [Suspect]
     Active Substance: PENTAZOCINE
     Indication: Product used for unknown indication
     Dosage: 100 MILLIGRAM
     Route: 065
  91. CODEINE [Suspect]
     Active Substance: CODEINE
     Indication: Product used for unknown indication
     Dosage: UNK
     Route: 065
  92. NORFLOXACIN [Suspect]
     Active Substance: NORFLOXACIN
     Indication: Product used for unknown indication
     Route: 065
  93. CODEINE SULFATE [Suspect]
     Active Substance: CODEINE SULFATE
     Indication: Product used for unknown indication
     Dosage: UNK
     Route: 065
  94. NITROGLYCERIN [Suspect]
     Active Substance: NITROGLYCERIN
     Indication: Product used for unknown indication
     Route: 065
  95. DILTIAZEM HYDROCHLORIDE [Suspect]
     Active Substance: DILTIAZEM HYDROCHLORIDE
     Indication: Product used for unknown indication
     Dosage: 120 MILLIGRAM
     Route: 065
  96. ASPIRIN [Suspect]
     Active Substance: ASPIRIN
     Indication: Product used for unknown indication
     Dosage: 100 MILLIGRAM
     Route: 065
  97. DONEPEZIL HYDROCHLORIDE [Suspect]
     Active Substance: DONEPEZIL HYDROCHLORIDE
     Indication: Product used for unknown indication
     Dosage: 5 MILLIGRAM
     Route: 065
  98. LEVOCETIRIZINE HYDROCHLORIDE [Suspect]
     Active Substance: LEVOCETIRIZINE HYDROCHLORIDE
     Indication: Product used for unknown indication
     Dosage: 5 MILLIGRAM
     Route: 065
  99. CODEINE PHOSPHATE [Suspect]
     Active Substance: CODEINE PHOSPHATE
     Indication: Product used for unknown indication
     Dosage: UNK
     Route: 065
  100. DOMPERIDONE MALEATE [Suspect]
     Active Substance: DOMPERIDONE MALEATE
     Indication: Product used for unknown indication
     Dosage: UNK
     Route: 065
  101. FLUVASTATIN SODIUM [Suspect]
     Active Substance: FLUVASTATIN SODIUM
     Indication: Product used for unknown indication
     Dosage: UNK
     Route: 065
  102. MOTILIUM [Suspect]
     Active Substance: DOMPERIDONE
     Indication: Product used for unknown indication
     Dosage: UNK
     Route: 065
  103. HYDROMORPHONE HYDROCHLORIDE [Suspect]
     Active Substance: HYDROMORPHONE HYDROCHLORIDE
     Indication: Product used for unknown indication
     Dosage: UNK
     Route: 048
  104. HYDROMORPHONE HYDROCHLORIDE [Suspect]
     Active Substance: HYDROMORPHONE HYDROCHLORIDE
     Dosage: UNK
     Route: 065
  105. ALENDRONATE SODIUM [Suspect]
     Active Substance: ALENDRONATE SODIUM
     Indication: Product used for unknown indication
     Dosage: UNK
     Route: 065
  106. IODINE [Suspect]
     Active Substance: IODINE
     Indication: Product used for unknown indication
     Dosage: UNK
     Route: 065
  107. IMATINIB MESYLATE [Suspect]
     Active Substance: IMATINIB MESYLATE
     Indication: Product used for unknown indication
     Dosage: UNK
     Route: 065
  108. SERTRALINE HYDROCHLORIDE [Suspect]
     Active Substance: SERTRALINE HYDROCHLORIDE
     Indication: Product used for unknown indication
     Dosage: UNK
     Route: 065
  109. DOMPERIDONE MALEATE [Suspect]
     Active Substance: DOMPERIDONE MALEATE
     Indication: Product used for unknown indication
     Dosage: UNK
     Route: 065
  110. HUMAN IMMUNOGLOBULIN G [Suspect]
     Active Substance: HUMAN IMMUNOGLOBULIN G
     Indication: Product used for unknown indication
     Dosage: 50 MILLIGRAM
     Route: 065
  111. RABIES IMMUNE GLOBULIN (HUMAN) [Suspect]
     Active Substance: RABIES IMMUNE GLOBULIN (HUMAN)
     Indication: Product used for unknown indication
     Dosage: UNK
     Route: 065
  112. ESCITALOPRAM [Suspect]
     Active Substance: ESCITALOPRAM OXALATE
     Indication: Product used for unknown indication
     Dosage: 5 MILLIGRAM
     Route: 065
  113. NITROGLYCERIN [Suspect]
     Active Substance: NITROGLYCERIN
     Indication: Product used for unknown indication
     Route: 065

REACTIONS (45)
  - Haemorrhagic stroke [Fatal]
  - Cardio-respiratory arrest [Fatal]
  - Altered state of consciousness [Fatal]
  - Sepsis [Fatal]
  - Headache [Fatal]
  - Myalgia [Fatal]
  - Blood pressure increased [Fatal]
  - Vision blurred [Fatal]
  - Blindness [Fatal]
  - Fall [Fatal]
  - Ascites [Fatal]
  - Decreased appetite [Fatal]
  - Generalised oedema [Fatal]
  - Chills [Fatal]
  - Urinary tract disorder [Fatal]
  - Presyncope [Fatal]
  - Haematemesis [Fatal]
  - Head discomfort [Fatal]
  - Ocular discomfort [Fatal]
  - Eye pain [Unknown]
  - Coma [Fatal]
  - Amaurosis fugax [Fatal]
  - Diarrhoea [Fatal]
  - Photophobia [Fatal]
  - Pyrexia [Fatal]
  - Syncope [Fatal]
  - Tinnitus [Fatal]
  - Tachycardia [Fatal]
  - Abdominal pain [Fatal]
  - Arthralgia [Fatal]
  - Fatigue [Fatal]
  - Dyspnoea [Fatal]
  - Malaise [Fatal]
  - Haematuria [Fatal]
  - Cough [Fatal]
  - Somnolence [Fatal]
  - Diplopia [Fatal]
  - Dizziness [Fatal]
  - Insomnia [Fatal]
  - Nausea [Fatal]
  - Asthenia [Fatal]
  - Vomiting [Fatal]
  - Pruritus [Fatal]
  - Somnolence [Fatal]
  - Abdominal pain upper [Fatal]
